FAERS Safety Report 23658696 (Version 1)
Quarter: 2024Q1

REPORT INFORMATION
  Report Type: Spontaneous
  Country: US (occurrence: US)
  Receive Date: 20240321
  Receipt Date: 20240321
  Transmission Date: 20240409
  Serious: Yes (Hospitalization, Other)
  Sender: FDA-Public Use
  Company Number: US-ELITEPHARMA-2024ELLIT00016

PATIENT
  Age: 52 Year
  Sex: Male

DRUGS (1)
  1. NALTREXONE [Suspect]
     Active Substance: NALTREXONE
     Indication: Alcohol use disorder
     Route: 030

REACTIONS (2)
  - Eosinophilic pneumonia [Recovered/Resolved]
  - Off label use [Unknown]
